FAERS Safety Report 9714491 (Version 1)
Quarter: 2013Q4

REPORT INFORMATION
  Report Type: Spontaneous
  Country: US (occurrence: US)
  Receive Date: 20131126
  Receipt Date: 20131126
  Transmission Date: 20140711
  Serious: No
  Sender: FDA-Public Use
  Company Number: US-BIOGENIDEC-2013BI086105

PATIENT
  Age: 65 Year
  Sex: Female
  Weight: 70 kg

DRUGS (13)
  1. TECFIDERA [Suspect]
     Indication: MULTIPLE SCLEROSIS
     Route: 048
     Dates: start: 20130822
  2. TECFIDERA [Suspect]
     Indication: MULTIPLE SCLEROSIS
     Route: 048
  3. AMPYRA [Concomitant]
  4. LYRICA [Concomitant]
  5. TRILEPTAL [Concomitant]
  6. DIOVAN [Concomitant]
  7. OXYBUTYNIN [Concomitant]
  8. MULTI-VITAMN [Concomitant]
  9. VITAMIN D [Concomitant]
  10. VITAMIN C [Concomitant]
  11. CALCIUM PLUS D [Concomitant]
  12. ENABLEX [Concomitant]
  13. VITAMIN E [Concomitant]

REACTIONS (3)
  - Pruritus [Unknown]
  - Rash erythematous [Unknown]
  - Flushing [Recovered/Resolved]
